FAERS Safety Report 6408097-4 (Version None)
Quarter: 2009Q4

REPORT INFORMATION
  Report Type: 
  Country: None (occurrence: None)
  Receive Date: 20091016
  Receipt Date: 20091006
  Transmission Date: 20100525
  Serious: Yes (Hospitalization)
  Sender: FDA-Public Use
  Company Number: GXKR2009FR11021

PATIENT
  Age: 43 Year
  Sex: Female

DRUGS (2)
  1. DEXTROPROPOXYPHENE (NGX) (DEXTROPROPOXYPHENE) UNKNOWN [Suspect]
     Indication: SCIATICA
  2. CHLOROQUIN (CHLOROQUINE) [Suspect]
     Indication: CUTANEOUS LUPUS ERYTHEMATOSUS
     Dosage: 200 MG/DAY (CUMULATIVE DOSE WAS 225G)
     Dates: start: 20031101

REACTIONS (11)
  - ATRIOVENTRICULAR BLOCK COMPLETE [None]
  - BUNDLE BRANCH BLOCK LEFT [None]
  - BUNDLE BRANCH BLOCK RIGHT [None]
  - CONDITION AGGRAVATED [None]
  - DRUG INTERACTION [None]
  - DRUG LEVEL INCREASED [None]
  - DRUG TOXICITY [None]
  - SCIATICA [None]
  - SYNCOPE [None]
  - SYSTEMIC LUPUS ERYTHEMATOSUS [None]
  - VENTRICULAR HYPOKINESIA [None]
